FAERS Safety Report 13631364 (Version 1)
Quarter: 2017Q2

REPORT INFORMATION
  Report Type: Spontaneous
  Country: US (occurrence: US)
  Receive Date: 20170608
  Receipt Date: 20170608
  Transmission Date: 20170830
  Serious: No
  Sender: FDA-Public Use
  Company Number: US-MEDA-2017050102

PATIENT
  Age: 39 Year
  Sex: Female
  Weight: 91 kg

DRUGS (5)
  1. MONTELUKAST [Concomitant]
     Active Substance: MONTELUKAST SODIUM
     Indication: RHINITIS ALLERGIC
     Route: 048
  2. DYMISTA [Concomitant]
     Active Substance: AZELASTINE HYDROCHLORIDE\FLUTICASONE PROPIONATE
     Indication: RHINITIS ALLERGIC
  3. ALLEGRA [Concomitant]
     Active Substance: FEXOFENADINE HYDROCHLORIDE
     Indication: RHINITIS ALLERGIC
  4. AEROSPAN [Suspect]
     Active Substance: FLUNISOLIDE
     Indication: ASTHMA
     Dates: start: 201602
  5. CETIRIZINE [Concomitant]
     Active Substance: CETIRIZINE HYDROCHLORIDE
     Indication: RHINITIS ALLERGIC
     Route: 048

REACTIONS (2)
  - Product quality issue [Unknown]
  - Dysgeusia [Recovered/Resolved]

NARRATIVE: CASE EVENT DATE: 201705
